FAERS Safety Report 13085673 (Version 1)
Quarter: 2017Q1

REPORT INFORMATION
  Report Type: Spontaneous
  Country: US (occurrence: US)
  Receive Date: 20170103
  Receipt Date: 20170103
  Transmission Date: 20170428
  Serious: Yes (Other)
  Sender: FDA-Public Use
  Company Number: None

PATIENT
  Age: 2 Year
  Sex: Male
  Weight: 15.3 kg

DRUGS (1)
  1. XYNTHA [Suspect]
     Active Substance: ANTIHEMOPHILIC FACTOR, HUMAN RECOMBINANT RESIDUES 743-1636 DELETED
     Indication: FACTOR VIII DEFICIENCY
     Dosage: ?          OTHER FREQUENCY:TWICE WEEKLY + PRN;?
     Route: 040
     Dates: start: 20141202, end: 20161230

REACTIONS (1)
  - Soft tissue haemorrhage [None]

NARRATIVE: CASE EVENT DATE: 20161228
